FAERS Safety Report 8348998-3 (Version None)
Quarter: 2012Q2

REPORT INFORMATION
  Report Type: 
  Country: None (occurrence: None)
  Receive Date: 20120508
  Receipt Date: 20120427
  Transmission Date: 20120825
  Serious: Yes (Other)
  Sender: FDA-Public Use
  Company Number: 217131

PATIENT
  Sex: Male
  Weight: 130 kg

DRUGS (3)
  1. SINTROM [Concomitant]
  2. INNOHEP [Suspect]
     Indication: DEEP VEIN THROMBOSIS
     Dosage: 0.9 ML (1 IN 1 D)
     Dates: start: 20120315, end: 20120321
  3. HERBAL TREATMENT (HERBAL PREPARATION) [Concomitant]

REACTIONS (4)
  - THROMBOCYTOPENIA [None]
  - LEUKOPENIA [None]
  - SKIN NECROSIS [None]
  - INCORRECT DOSE ADMINISTERED [None]
